FAERS Safety Report 7886276-7 (Version None)
Quarter: 2011Q4

REPORT INFORMATION
  Report Type: 
  Country: None (occurrence: None)
  Receive Date: 20111102
  Receipt Date: 20110629
  Transmission Date: 20120403
  Serious: No
  Sender: FDA-Public Use
  Company Number: US-AMGEN-USASP2011033315

PATIENT
  Age: 38 Year
  Sex: Male

DRUGS (2)
  1. ENBREL [Suspect]
     Dosage: UNK, Q2MO
  2. ENBREL [Suspect]
     Indication: PSORIATIC ARTHROPATHY
     Dosage: 50 MG, Q6MO
     Dates: start: 20070621

REACTIONS (5)
  - BREAST PAIN [None]
  - CHEST PAIN [None]
  - BRONCHITIS [None]
  - IMMUNOSUPPRESSION [None]
  - INFECTION [None]
